FAERS Safety Report 7911230-6 (Version None)
Quarter: 2011Q4

REPORT INFORMATION
  Report Type: 
  Country: None (occurrence: None)
  Receive Date: 20111108
  Receipt Date: 20111026
  Transmission Date: 20120403
  Serious: Yes (Other)
  Sender: FDA-Public Use
  Company Number: 2011SP050950

PATIENT
  Sex: Male

DRUGS (5)
  1. UNSPECIFIED MEDICATION [Suspect]
     Indication: HEPATITIS C
     Dates: start: 19990101
  2. INCIVEK [Concomitant]
  3. RIBAVIRIN [Suspect]
     Indication: HEPATITIS C
     Dates: start: 20111026
  4. RIBAVIRIN [Suspect]
     Indication: HEPATITIS C
     Dates: start: 19990101
  5. ATIVAN [Concomitant]

REACTIONS (7)
  - DIABETES MELLITUS [None]
  - RENAL FAILURE [None]
  - SPUTUM DISCOLOURED [None]
  - MYOCARDIAL INFARCTION [None]
  - PANIC ATTACK [None]
  - ANXIETY [None]
  - CONVULSION [None]
